FAERS Safety Report 10408922 (Version 1)
Quarter: 2014Q1

REPORT INFORMATION
  Report Type: Spontaneous
  Country: US (occurrence: None)
  Receive Date: 20130702
  Receipt Date: 20130702
  Transmission Date: 20141002
  Serious: No
  Sender: FDA-Public Use
  Company Number: 411692H

PATIENT
  Age: 78 Year
  Sex: Male
  Weight: 65 kg

DRUGS (1)
  1. PACLITAXEL (PACLITAXEL) [Suspect]
     Indication: PRODUCT USED FOR UNKNOWN INDICATION
     Dosage: UNKNOWN, ONCE, UNKNOWN, INTRAVENOUS
     Route: 042
     Dates: start: 20090929, end: 20090929

REACTIONS (2)
  - Flushing [None]
  - Dyspnoea [None]
